FAERS Safety Report 12399144 (Version 1)
Quarter: 2016Q2

REPORT INFORMATION
  Report Type: Spontaneous
  Country: US (occurrence: US)
  Receive Date: 20160524
  Receipt Date: 20160524
  Transmission Date: 20160815
  Serious: Yes (Life-Threatening, Hospitalization, Other)
  Sender: FDA-Public Use
  Company Number: US-MDT-ADR-2016-00493

PATIENT
  Age: 61 Year
  Sex: Male

DRUGS (6)
  1. DILAUDID [Suspect]
     Active Substance: HYDROMORPHONE HYDROCHLORIDE
     Dosage: 9.566 MG/DAY
     Route: 037
  2. FENTANYL. [Suspect]
     Active Substance: FENTANYL
     Dosage: 255.08 MCG/DAY
     Route: 037
  3. NEURONTIN [Suspect]
     Active Substance: GABAPENTIN
     Dosage: 7.971 MG/DAY
     Route: 037
  4. COMPOUNDED BACLOFEN [Suspect]
     Active Substance: BACLOFEN
     Dosage: 63.77 MCG/DAY
     Route: 037
  5. CLONIDINE. [Suspect]
     Active Substance: CLONIDINE
     Dosage: 9.566 MCG/DAY
     Route: 037
  6. VANCOMYCIN [Suspect]
     Active Substance: VANCOMYCIN
     Route: 042

REACTIONS (7)
  - Culture positive [Recovered/Resolved]
  - Implant site infection [Recovered/Resolved]
  - Medical device site discharge [Recovered/Resolved]
  - Malaise [Recovered/Resolved]
  - Toxicity to various agents [Recovered/Resolved]
  - Purulent discharge [Recovered/Resolved]
  - Meningitis [Recovered/Resolved]
